FAERS Safety Report 12133821 (Version 2)
Quarter: 2016Q1

REPORT INFORMATION
  Report Type: Report from Study
  Country: US (occurrence: US)
  Receive Date: 20160301
  Receipt Date: 20160314
  Transmission Date: 20160526
  Serious: No
  Sender: FDA-Public Use
  Company Number: US-AMGEN-USASL2016022056

PATIENT
  Age: 60 Year
  Sex: Female

DRUGS (1)
  1. ENBREL [Suspect]
     Active Substance: ETANERCEPT
     Indication: RHEUMATOID ARTHRITIS
     Dosage: 50 MG, QWK
     Route: 065
     Dates: start: 20160217, end: 2016

REACTIONS (14)
  - Headache [Unknown]
  - Eye disorder [Unknown]
  - Pruritus generalised [Unknown]
  - Throat irritation [Unknown]
  - Vision blurred [Unknown]
  - Lacrimation decreased [Unknown]
  - Cough [Not Recovered/Not Resolved]
  - Injection site swelling [Unknown]
  - Injection site erythema [Unknown]
  - Eye pain [Unknown]
  - Injection site induration [Unknown]
  - Upper respiratory tract infection [Unknown]
  - Fatigue [Unknown]
  - Injection site pruritus [Unknown]

NARRATIVE: CASE EVENT DATE: 2016
